APPROVED DRUG PRODUCT: MUPIROCIN
Active Ingredient: MUPIROCIN CALCIUM
Strength: EQ 2% BASE
Dosage Form/Route: CREAM;TOPICAL
Application: A212465 | Product #001
Applicant: PADAGIS ISRAEL PHARMACEUTICALS LTD
Approved: Aug 3, 2022 | RLD: No | RS: No | Type: DISCN